FAERS Safety Report 17072253 (Version 1)
Quarter: 2019Q4

REPORT INFORMATION
  Report Type: Spontaneous
  Country: US (occurrence: US)
  Receive Date: 20191125
  Receipt Date: 20191125
  Transmission Date: 20200122
  Serious: No
  Sender: FDA-Public Use
  Company Number: US-ZYLA LIFE SCIENCES-US-2019EGA001484

PATIENT
  Sex: Female

DRUGS (2)
  1. ZORVOLEX [Suspect]
     Active Substance: DICLOFENAC
     Dosage: 35 MG, UNK
  2. ZORVOLEX [Suspect]
     Active Substance: DICLOFENAC
     Indication: PAIN
     Dosage: 18 MG, UNK

REACTIONS (1)
  - Drug ineffective [Unknown]
